FAERS Safety Report 9659902 (Version 2)
Quarter: 2013Q4

REPORT INFORMATION
  Report Type: Spontaneous
  Country: BR (occurrence: BR)
  Receive Date: 20131031
  Receipt Date: 20131031
  Transmission Date: 20140711
  Serious: Yes (Other)
  Sender: FDA-Public Use
  Company Number: BR-PFIZER INC-2013160793

PATIENT
  Age: 72 Year
  Sex: Female
  Weight: 62 kg

DRUGS (13)
  1. SUTENT [Suspect]
     Indication: RENAL CELL CARCINOMA
     Dosage: 50 MG, CYCLIC (1 CAPSULE 1X/DAY 4 PER 2)
     Route: 048
     Dates: start: 20130519
  2. SUTENT [Suspect]
     Dosage: 37.5 MG, CYCLIC (4 PER 2)
     Route: 048
  3. SUTENT [Suspect]
     Dosage: 75 MG (2 CAPSULES OF 37.5 MG), 1X/DAY
     Route: 048
     Dates: end: 20131016
  4. SUTENT [Suspect]
     Dosage: 75 MG (2 CAPSULES OF 37.5 MG), 1X/DAY
     Route: 048
  5. ENALAMED [Concomitant]
     Dosage: TWO TABLETS DAILY
     Route: 048
  6. ENALAMED [Concomitant]
     Dosage: 40 MG, (2 TABLETS) UNSPECIFIED FREQUENCY
  7. DULCOLAX [Concomitant]
  8. OMEPRAZOLE [Concomitant]
  9. ANCORON [Concomitant]
     Dosage: HALF (UNSPECIFIED FORMULATION) DAILY
  10. PRESSAT [Concomitant]
     Dosage: 5 MG, 1X/DAY (ONE TABLET DAILY)
  11. CALCIUM [Concomitant]
  12. AMIORON [Concomitant]
     Dosage: 10 MG (A HALF A TABLET OF 20 MG), DAILY
  13. HYDROCHLOROTHIAZIDE [Concomitant]
     Dosage: STRENGTH 25 MG, AT 1 TABLET

REACTIONS (31)
  - Blood pressure increased [Unknown]
  - Dysentery [Recovered/Resolved]
  - Nausea [Not Recovered/Not Resolved]
  - Formication [Unknown]
  - Malaise [Unknown]
  - Dry mouth [Not Recovered/Not Resolved]
  - Yellow skin [Unknown]
  - Eye swelling [Unknown]
  - Dark circles under eyes [Unknown]
  - Gingival pain [Unknown]
  - Dysgeusia [Not Recovered/Not Resolved]
  - Decreased appetite [Unknown]
  - Vomiting [Unknown]
  - Weight decreased [Unknown]
  - Constipation [Unknown]
  - Diarrhoea [Unknown]
  - Pulpitis dental [Unknown]
  - Dysgeusia [Unknown]
  - Eating disorder [Unknown]
  - Oral pain [Not Recovered/Not Resolved]
  - Alopecia [Unknown]
  - Platelet count decreased [Unknown]
  - Mouth injury [Unknown]
  - Pain in extremity [Unknown]
  - Pruritus [Unknown]
  - Faeces discoloured [Recovered/Resolved]
  - Fatigue [Unknown]
  - Injury [Unknown]
  - Epistaxis [Unknown]
  - Pigmentation disorder [Unknown]
  - Blood pressure abnormal [Unknown]
